FAERS Safety Report 24987178 (Version 1)
Quarter: 2025Q1

REPORT INFORMATION
  Report Type: Spontaneous
  Country: CH (occurrence: CH)
  Receive Date: 20250219
  Receipt Date: 20250219
  Transmission Date: 20250408
  Serious: Yes (Hospitalization, Other)
  Sender: MERCK SHARP & DOHME LLC
  Company Number: CH-SM-2024-12956

PATIENT
  Age: 67 Year
  Sex: Male
  Weight: 86 kg

DRUGS (20)
  1. KEYTRUDA [Suspect]
     Active Substance: PEMBROLIZUMAB
     Indication: Bladder transitional cell carcinoma metastatic
     Dosage: DOSE DESCRIPTION : 200 MILLIGRAM, Q3W?DAILY DOSE : 9.4 MILLIGRAM?REGIMEN DOSE : 200  MILLIGRAM
     Route: 041
     Dates: start: 20240320, end: 20240320
  2. TORSEMIDE [Concomitant]
     Active Substance: TORSEMIDE
     Route: 048
  3. ALDACTONE [Concomitant]
     Active Substance: SPIRONOLACTONE
     Indication: Hepatic cirrhosis
     Route: 048
  4. CARVEDILOL [Concomitant]
     Active Substance: CARVEDILOL
     Indication: Prophylaxis
     Route: 048
  5. CANDESARTAN [Concomitant]
     Active Substance: CANDESARTAN
     Indication: Hypertensive heart disease
     Route: 048
  6. Pradif-T [Concomitant]
     Indication: Benign prostatic hyperplasia
     Route: 048
  7. NORFLOXACIN [Concomitant]
     Active Substance: NORFLOXACIN
     Indication: Prophylaxis
     Route: 048
  8. QUININE SULFATE [Concomitant]
     Active Substance: QUININE SULFATE
     Route: 048
  9. MELATONIN [Concomitant]
     Active Substance: MELATONIN
     Route: 048
  10. MIRTAZAPINE [Concomitant]
     Active Substance: MIRTAZAPINE
     Indication: Adjustment disorder
     Route: 048
  11. CETIRIZINE HYDROCHLORIDE [Concomitant]
     Active Substance: CETIRIZINE HYDROCHLORIDE
     Route: 048
  12. Durogesic Cutaneous [Concomitant]
     Indication: Pain
     Dosage: 25MG/H
     Route: 062
  13. PADCEV [Suspect]
     Active Substance: ENFORTUMAB VEDOTIN-EJFV
     Indication: Bladder transitional cell carcinoma metastatic
     Route: 041
     Dates: start: 20240320, end: 20240328
  14. VENOFER [Concomitant]
     Active Substance: IRON SUCROSE
  15. ARANESP [Concomitant]
     Active Substance: DARBEPOETIN ALFA
     Route: 042
  16. PANTOPRAZOLE SODIUM [Concomitant]
     Active Substance: PANTOPRAZOLE SODIUM
     Route: 048
  17. DUPHALAC [Concomitant]
     Active Substance: LACTULOSE
     Route: 048
  18. MAGNESIUM ASPARTATE HYDROCHLORIDE [Concomitant]
     Active Substance: MAGNESIUM ASPARTATE HYDROCHLORIDE
     Route: 048
  19. PHENPROCOUMON [Concomitant]
     Active Substance: PHENPROCOUMON
     Indication: Portal vein thrombosis
  20. Metolazon galepharm [Concomitant]

REACTIONS (4)
  - Stevens-Johnson syndrome [Recovering/Resolving]
  - Oral candidiasis [Unknown]
  - Agranulocytosis [Unknown]
  - SJS-TEN overlap [Recovering/Resolving]

NARRATIVE: CASE EVENT DATE: 20240330
